FAERS Safety Report 8357563-3 (Version None)
Quarter: 2012Q2

REPORT INFORMATION
  Report Type: 
  Country: None (occurrence: None)
  Receive Date: 20120514
  Receipt Date: 20120503
  Transmission Date: 20120825
  Serious: Yes (Hospitalization)
  Sender: FDA-Public Use
  Company Number: BR-ROCHE-1065539

PATIENT
  Sex: Male
  Weight: 76.7 kg

DRUGS (7)
  1. FOLIC ACID [Concomitant]
     Dates: start: 20090301
  2. CALDE [Concomitant]
     Dates: start: 20090301
  3. ACETAMINOPHEN [Concomitant]
     Dates: start: 20111222
  4. PRILOSEC [Concomitant]
     Dates: start: 20060101
  5. ACTEMRA [Suspect]
     Indication: RHEUMATOID ARTHRITIS
     Dosage: LAST DOSE PRIOR TO SAE: 09 APRIL 2012
     Route: 042
     Dates: start: 20100510
  6. METHOTREXATE [Suspect]
     Indication: RHEUMATOID ARTHRITIS
     Dates: start: 20090301, end: 20120426
  7. PREDNISOLONE [Concomitant]
     Dates: start: 20120220

REACTIONS (1)
  - PEAU D'ORANGE [None]
